FAERS Safety Report 6375737-8 (Version None)
Quarter: 2009Q3

REPORT INFORMATION
  Report Type: 
  Country: None (occurrence: None)
  Receive Date: 20090922
  Receipt Date: 20090922
  Transmission Date: 20100115
  Serious: Yes (Other)
  Sender: FDA-Public Use
  Company Number: None

PATIENT
  Age: 69 Year
  Sex: Female
  Weight: 154 kg

DRUGS (2)
  1. NATRECOR [Suspect]
     Indication: CARDIAC FAILURE CONGESTIVE
     Dosage: 2 MCG/KG BOLUS OVER 60 SEC IV BOLUS; 1 MCG/KG BOLUS OVER 60 SEC IV BOLUS
     Route: 040
     Dates: start: 20090917, end: 20090917
  2. NATRECOR [Suspect]
     Indication: CARDIAC FAILURE CONGESTIVE
     Dosage: 2 MCG/KG BOLUS OVER 60 SEC IV BOLUS; 1 MCG/KG BOLUS OVER 60 SEC IV BOLUS
     Route: 040
     Dates: start: 20090918, end: 20090918

REACTIONS (1)
  - BLOOD PRESSURE DECREASED [None]
